FAERS Safety Report 24074095 (Version 3)
Quarter: 2024Q4

REPORT INFORMATION
  Report Type: Spontaneous
  Country: DE (occurrence: DE)
  Receive Date: 20240710
  Receipt Date: 20241119
  Transmission Date: 20250115
  Serious: No
  Sender: BAYER HEALTHCARE PHARMACEUTICALS INC.
  Company Number: DE-BAYER-2024A096926

PATIENT
  Age: 33 Year
  Sex: Female
  Weight: 45 kg

DRUGS (7)
  1. KERENDIA [Suspect]
     Active Substance: FINERENONE
     Indication: Glomerular filtration rate
     Dosage: 10 MG
  2. KERENDIA [Suspect]
     Active Substance: FINERENONE
     Indication: Blood creatinine
  3. KERENDIA [Suspect]
     Active Substance: FINERENONE
     Indication: Glomerular filtration rate
     Dosage: 20 MG
  4. KERENDIA [Suspect]
     Active Substance: FINERENONE
     Indication: Blood creatinine
  5. DAPAGLIFLOZIN [Concomitant]
     Active Substance: DAPAGLIFLOZIN
     Dosage: 10 MG
  6. RAMIPRIL [Concomitant]
     Active Substance: RAMIPRIL
     Dosage: 2.5 MG, BID
  7. RAMIPRIL [Concomitant]
     Active Substance: RAMIPRIL
     Dosage: 10 MG

REACTIONS (5)
  - Glomerular filtration rate decreased [Not Recovered/Not Resolved]
  - Blood creatinine increased [None]
  - Blood potassium increased [None]
  - Incorrect dose administered [None]
  - Off label use [None]
